FAERS Safety Report 21228248 (Version 1)
Quarter: 2022Q3

REPORT INFORMATION
  Report Type: Spontaneous
  Country: US (occurrence: US)
  Receive Date: 20220818
  Receipt Date: 20220818
  Transmission Date: 20221027
  Serious: No
  Sender: FDA-Public Use
  Company Number: US-BIOVITRUM-2022US08600

PATIENT
  Sex: Female

DRUGS (2)
  1. KINERET [Suspect]
     Active Substance: ANAKINRA
     Indication: Rheumatoid arthritis
     Dosage: 100MG/0.67ML
     Dates: start: 202103
  2. KINERET [Suspect]
     Active Substance: ANAKINRA
     Dates: start: 202103

REACTIONS (3)
  - COVID-19 [Unknown]
  - Injection site pain [Unknown]
  - Product storage error [Unknown]
